FAERS Safety Report 15083172 (Version 17)
Quarter: 2019Q3

REPORT INFORMATION
  Report Type: Report from Study
  Country: DK (occurrence: DK)
  Receive Date: 20180628
  Receipt Date: 20190913
  Transmission Date: 20191004
  Serious: Yes (Other)
  Sender: FDA-Public Use
  Company Number: DK-TAKEDA-2018MPI007921

PATIENT
  Age: 73 Year
  Sex: Male

DRUGS (56)
  1. DEXAMETHASONE. [Suspect]
     Active Substance: DEXAMETHASONE
     Indication: PLASMA CELL MYELOMA
     Dosage: 120 MILLIGRAM
     Route: 048
     Dates: start: 20180305, end: 20180314
  2. REVLIMID [Suspect]
     Active Substance: LENALIDOMIDE
     Dosage: 100 MILLIGRAM, QD
     Route: 048
     Dates: start: 20180326, end: 20180407
  3. MOVICOL [Concomitant]
     Active Substance: POLYETHYLENE GLYCOL 3350\POTASSIUM CHLORIDE\SODIUM BICARBONATE\SODIUM CHLORIDE
     Indication: CONSTIPATION
     Dosage: UNK
     Route: 065
  4. SERTRALINE [Concomitant]
     Active Substance: SERTRALINE HYDROCHLORIDE
     Indication: DEPRESSION
     Dosage: UNK
     Route: 065
  5. ACICLOVIR [Concomitant]
     Active Substance: ACYCLOVIR
     Indication: HERPES VIRUS INFECTION
     Dosage: UNK
     Route: 065
  6. BORTEZOMIB. [Suspect]
     Active Substance: BORTEZOMIB
     Dosage: 20 MILLIGRAM, 1/WEEK
     Route: 058
     Dates: start: 20180326, end: 20180407
  7. BORTEZOMIB. [Suspect]
     Active Substance: BORTEZOMIB
     Dosage: 15 MILLIGRAM/SQ. METER, 1/WEEK
     Route: 058
     Dates: start: 20180330, end: 20180407
  8. BORTEZOMIB. [Suspect]
     Active Substance: BORTEZOMIB
     Dosage: UNK
     Route: 058
     Dates: start: 20180503, end: 20180505
  9. DEXAMETHASONE. [Suspect]
     Active Substance: DEXAMETHASONE
     Dosage: 640 MILLIGRAM, 1/WEEK
     Route: 048
     Dates: start: 20180529, end: 20180607
  10. REVLIMID [Suspect]
     Active Substance: LENALIDOMIDE
     Dosage: 30 MILLIGRAM, QD
     Route: 048
     Dates: start: 20180326, end: 20180328
  11. REVLIMID [Suspect]
     Active Substance: LENALIDOMIDE
     Dosage: 600 MILLIGRAM, 1/WEEK
     Route: 048
     Dates: start: 20180412, end: 20180422
  12. PANTOPRAZOL [Concomitant]
     Active Substance: PANTOPRAZOLE SODIUM
     Indication: ULCER
     Dosage: UNK
     Route: 065
  13. CALCIUM W/COLECALCIFEROL [Concomitant]
     Active Substance: CALCIUM\CHOLECALCIFEROL
     Indication: BLOOD CALCIUM DECREASED
     Dosage: UNK
     Route: 065
  14. CIPROFLOXACIN. [Concomitant]
     Active Substance: CIPROFLOXACIN
     Indication: LUNG INFECTION
     Dosage: UNK
     Route: 065
  15. BIOCLAVID [Concomitant]
     Active Substance: AMOXICILLIN\CLAVULANIC ACID
     Indication: LUNG INFECTION
     Dosage: UNK
     Route: 065
  16. BENDAMUSTINE [Concomitant]
     Active Substance: BENDAMUSTINE
     Indication: CHRONIC LYMPHOCYTIC LEUKAEMIA
  17. BORTEZOMIB. [Suspect]
     Active Substance: BORTEZOMIB
     Dosage: 15.6 MILLIGRAM/SQ. METER, 1/WEEK
     Route: 058
     Dates: start: 20180412, end: 20180422
  18. DEXAMETHASONE. [Suspect]
     Active Substance: DEXAMETHASONE
     Dosage: UNK
     Route: 048
     Dates: start: 20180316, end: 20180325
  19. REVLIMID [Suspect]
     Active Substance: LENALIDOMIDE
     Dosage: 100 MILLIGRAM, 1/WEEK
     Route: 048
     Dates: start: 20180529, end: 20180607
  20. PIPERACILLIN/TAZOBACTAM [Concomitant]
     Active Substance: PIPERACILLIN SODIUM\TAZOBACTAM SODIUM
     Indication: LUNG INFECTION
  21. SULFAMETOXAZOL/TRIMETOPRIM [Concomitant]
     Active Substance: SULFAMETHOXAZOLE\TRIMETHOPRIM
     Indication: PNEUMOCYSTIS JIROVECII INFECTION
     Dosage: UNK
     Route: 065
  22. BORTEZOMIB. [Suspect]
     Active Substance: BORTEZOMIB
     Dosage: 5 MILLIGRAM/SQ. METER, 1/WEEK
     Route: 058
     Dates: start: 20180326, end: 20180328
  23. REVLIMID [Suspect]
     Active Substance: LENALIDOMIDE
     Dosage: 600 MILLIGRAM, 1/WEEK
     Route: 048
     Dates: start: 20180508
  24. LOSARTAN                           /01121602/ [Concomitant]
     Active Substance: LOSARTAN
     Indication: BLOOD PRESSURE MEASUREMENT
     Dosage: UNK
     Route: 065
  25. ZARZIO [Concomitant]
     Active Substance: FILGRASTIM
     Indication: NEUTROPENIA
  26. PARACETAMOL [Concomitant]
     Active Substance: ACETAMINOPHEN
     Indication: PAIN
     Dosage: UNK
     Route: 065
  27. BORTEZOMIB. [Suspect]
     Active Substance: BORTEZOMIB
     Indication: PLASMA CELL MYELOMA
     Dosage: 15.6 MILLIGRAM/SQ. METER, QD
     Route: 058
     Dates: start: 20180305, end: 20180314
  28. DEXAMETHASONE. [Suspect]
     Active Substance: DEXAMETHASONE
     Dosage: 480 MILLIGRAM, 1/WEEK
     Route: 048
     Dates: start: 20180330, end: 20180407
  29. REVLIMID [Suspect]
     Active Substance: LENALIDOMIDE
     Dosage: 600 MILLIGRAM, 1/WEEK
     Route: 048
     Dates: start: 20180508
  30. IMBRUVICA [Concomitant]
     Active Substance: IBRUTINIB
     Indication: CHRONIC LYMPHOCYTIC LEUKAEMIA
     Dosage: UNK
     Route: 065
  31. BORTEZOMIB. [Suspect]
     Active Substance: BORTEZOMIB
     Dosage: UNK
     Route: 058
     Dates: start: 20180316, end: 20180325
  32. BORTEZOMIB. [Suspect]
     Active Substance: BORTEZOMIB
     Dosage: 18.4 MILLIGRAM/SQ. METER, 1/WEEK
     Route: 058
     Dates: start: 20180529, end: 20180607
  33. DEXAMETHASONE. [Suspect]
     Active Substance: DEXAMETHASONE
     Dosage: 160 MILLIGRAM, 1/WEEK
     Route: 048
     Dates: start: 20180326, end: 20180328
  34. DEXAMETHASONE. [Suspect]
     Active Substance: DEXAMETHASONE
     Dosage: 160 MILLIGRAM, 1/WEEK
     Route: 048
     Dates: start: 20180326, end: 20180407
  35. DEXAMETHASONE. [Suspect]
     Active Substance: DEXAMETHASONE
     Dosage: 480 MILLIGRAM, 1/WEEK
     Route: 048
     Dates: start: 20180412, end: 20180422
  36. DEXAMETHASONE. [Suspect]
     Active Substance: DEXAMETHASONE
     Dosage: 640 MILLIGRAM, 1/WEEK
     Route: 048
     Dates: start: 20180508, end: 20180519
  37. REVLIMID [Suspect]
     Active Substance: LENALIDOMIDE
     Dosage: 350 MILLIGRAM, 1/WEEK
     Route: 048
     Dates: start: 20180330, end: 20180407
  38. FLUCONAZOL [Concomitant]
     Active Substance: FLUCONAZOLE
     Indication: FUNGAL INFECTION
  39. ASPIRIN                            /00002701/ [Concomitant]
     Active Substance: ASPIRIN
     Indication: PROPHYLAXIS
     Dosage: UNK
     Route: 065
  40. PIPERACILLIN/TAZOBACTAM [Concomitant]
     Active Substance: PIPERACILLIN SODIUM\TAZOBACTAM SODIUM
     Indication: PNEUMOCYSTIS JIROVECII INFECTION
     Dosage: UNK
     Route: 065
  41. ZARZIO [Concomitant]
     Active Substance: FILGRASTIM
     Indication: HAEMATOPOIETIC STEM CELL MOBILISATION
     Dosage: UNK
     Route: 058
     Dates: start: 20180529, end: 20180625
  42. ALOPURINOL [Concomitant]
     Active Substance: ALLOPURINOL
     Indication: GOUT
     Dosage: UNK
     Route: 065
  43. FINASTERIDE. [Concomitant]
     Active Substance: FINASTERIDE
     Indication: PROSTATOMEGALY
     Dosage: UNK
     Route: 065
  44. HIRUDOID [Concomitant]
     Active Substance: GLYCOSAMINOGLYCANS
     Indication: PHLEBITIS
     Dosage: UNK
     Route: 065
  45. REVLIMID [Suspect]
     Active Substance: LENALIDOMIDE
     Indication: PLASMA CELL MYELOMA
     Dosage: 80 MILLIGRAM, QD
     Route: 048
     Dates: start: 20180305, end: 20180314
  46. FLUCONAZOL [Concomitant]
     Active Substance: FLUCONAZOLE
     Indication: SECRETION DISCHARGE
     Dosage: UNK
     Route: 065
  47. MIRTAZAPIN [Concomitant]
     Active Substance: MIRTAZAPINE
     Indication: DEPRESSION
     Dosage: UNK
     Route: 065
  48. PRIVIGEN [Concomitant]
     Active Substance: HUMAN IMMUNOGLOBULIN G
     Indication: INFECTION PROPHYLAXIS
     Dosage: 200 MILLIGRAM
     Route: 065
     Dates: start: 20180529
  49. PRIVIGEN [Concomitant]
     Active Substance: HUMAN IMMUNOGLOBULIN G
     Indication: NEUTROPENIA
  50. RITUXIMAB. [Concomitant]
     Active Substance: RITUXIMAB
     Indication: CHRONIC LYMPHOCYTIC LEUKAEMIA
     Dosage: UNK
     Route: 065
  51. BORTEZOMIB. [Suspect]
     Active Substance: BORTEZOMIB
     Dosage: 18.4 MILLIGRAM/SQ. METER, 1/WEEK
     Route: 058
     Dates: start: 20180508, end: 20180519
  52. DEXAMETHASONE. [Suspect]
     Active Substance: DEXAMETHASONE
     Dosage: 20 MILLIGRAM
     Route: 048
  53. REVLIMID [Suspect]
     Active Substance: LENALIDOMIDE
     Dosage: 720 MILLIGRAM, 1/WEEK
     Route: 048
     Dates: start: 20180508, end: 20180519
  54. REVLIMID [Suspect]
     Active Substance: LENALIDOMIDE
     Dosage: 10 MILLIGRAM
     Route: 048
     Dates: start: 20180529, end: 20180619
  55. ZYDELIG [Concomitant]
     Active Substance: IDELALISIB
     Indication: CHRONIC LYMPHOCYTIC LEUKAEMIA
     Dosage: UNK
     Route: 065
  56. OXYCODON [Concomitant]
     Active Substance: OXYCODONE
     Indication: PAIN
     Dosage: UNK
     Route: 065

REACTIONS (7)
  - Thrombocytopenia [Recovered/Resolved]
  - Neutropenia [Recovered/Resolved]
  - Candida infection [Recovered/Resolved]
  - Dyspnoea [Recovered/Resolved]
  - Fatigue [Recovered/Resolved]
  - Dizziness [Recovered/Resolved]
  - Anaemia [Recovered/Resolved]

NARRATIVE: CASE EVENT DATE: 20180503
